FAERS Safety Report 23898749 (Version 1)
Quarter: 2024Q2

REPORT INFORMATION
  Report Type: Spontaneous
  Country: CN (occurrence: CN)
  Receive Date: 20240525
  Receipt Date: 20240525
  Transmission Date: 20240716
  Serious: Yes (Other)
  Sender: FDA-Public Use
  Company Number: CN-ABBVIE-5769315

PATIENT
  Age: 36 Year
  Sex: Male

DRUGS (4)
  1. VENETOCLAX [Suspect]
     Active Substance: VENETOCLAX
     Indication: Product used for unknown indication
     Dosage: 200 MG TWO TIMES PER DAY
     Route: 048
     Dates: start: 20240506, end: 20240513
  2. VENETOCLAX [Suspect]
     Active Substance: VENETOCLAX
     Indication: Product used for unknown indication
     Dosage: 100 MG TWO TIMES PER DAY
     Route: 048
     Dates: start: 20240502, end: 20240505
  3. VENETOCLAX [Suspect]
     Active Substance: VENETOCLAX
     Indication: Product used for unknown indication
     Dosage: 100 MG TWO TIMES PER DAY
     Route: 048
     Dates: start: 20240502, end: 20240505
  4. AZACITIDINE [Suspect]
     Active Substance: AZACITIDINE
     Indication: Product used for unknown indication
     Dosage: 100 MILLIGRAM
     Route: 058
     Dates: start: 20240503, end: 20240509

REACTIONS (3)
  - Leukopenia [Recovering/Resolving]
  - Thrombocytopenia [Recovering/Resolving]
  - Neutropenia [Recovering/Resolving]

NARRATIVE: CASE EVENT DATE: 20240515
